FAERS Safety Report 7183540-4 (Version None)
Quarter: 2010Q4

REPORT INFORMATION
  Report Type: 
  Country: None (occurrence: None)
  Receive Date: 20101222
  Receipt Date: 20101221
  Transmission Date: 20110411
  Serious: Yes (Other)
  Sender: FDA-Public Use
  Company Number: GXKR2010DE14211

PATIENT
  Sex: Female

DRUGS (1)
  1. FORMOTEROL HEXAL (NGX) [Suspect]
     Dosage: AS NEEDED

REACTIONS (1)
  - ANGIOEDEMA [None]
